FAERS Safety Report 23703823 (Version 5)
Quarter: 2025Q3

REPORT INFORMATION
  Report Type: Spontaneous
  Country: CA (occurrence: CA)
  Receive Date: 20240403
  Receipt Date: 20250721
  Transmission Date: 20251021
  Serious: Yes (Other)
  Sender: HLS THERAPEUTICS
  Company Number: CA-HLS-202400848

PATIENT
  Age: 27 Year

DRUGS (55)
  1. CLOZAPINE [Suspect]
     Active Substance: CLOZAPINE
     Indication: Schizophrenia
     Route: 065
  2. CLOZAPINE [Suspect]
     Active Substance: CLOZAPINE
     Indication: Schizophrenia
     Dosage: 1 EVERY 1 DAYS
     Route: 065
  3. CLOZAPINE [Suspect]
     Active Substance: CLOZAPINE
     Indication: Schizophrenia
     Route: 065
  4. METHOTREXATE [Suspect]
     Active Substance: METHOTREXATE
     Indication: Psoriasis
     Route: 065
  5. ABILIFY MAINTENA [Concomitant]
     Active Substance: ARIPIPRAZOLE
     Indication: Product used for unknown indication
     Route: 030
  6. BETADERM [Concomitant]
     Active Substance: BETAMETHASONE VALERATE
     Indication: Product used for unknown indication
     Route: 065
  7. BETAMETHASONE [Concomitant]
     Active Substance: BETAMETHASONE
     Indication: Product used for unknown indication
     Route: 061
  8. BETAMETHASONE [Concomitant]
     Active Substance: BETAMETHASONE
     Indication: Product used for unknown indication
     Route: 061
  9. BUPRENORPHINE [Concomitant]
     Active Substance: BUPRENORPHINE
     Indication: Product used for unknown indication
     Route: 058
  10. BUPRENORPHINE [Concomitant]
     Active Substance: BUPRENORPHINE
     Indication: Product used for unknown indication
     Route: 058
  11. LITHIUM CARBONATE [Concomitant]
     Active Substance: LITHIUM CARBONATE
     Indication: Product used for unknown indication
     Route: 048
  12. ZUCLOPENTHIXOL [Concomitant]
     Active Substance: ZUCLOPENTHIXOL
     Indication: Agitation
     Route: 065
  13. ZUCLOPENTHIXOL [Concomitant]
     Active Substance: ZUCLOPENTHIXOL
     Indication: Insomnia
     Route: 065
  14. ZUCLOPENTHIXOL [Concomitant]
     Active Substance: ZUCLOPENTHIXOL
     Indication: Schizophrenia
     Route: 065
  15. ZUCLOPENTHIXOL [Concomitant]
     Active Substance: ZUCLOPENTHIXOL
     Indication: Agitation
     Route: 065
  16. ZUCLOPENTHIXOL [Concomitant]
     Active Substance: ZUCLOPENTHIXOL
     Indication: Insomnia
     Route: 065
  17. ZUCLOPENTHIXOL [Concomitant]
     Active Substance: ZUCLOPENTHIXOL
     Indication: Schizophrenia
     Route: 065
  18. ZUCLOPENTHIXOL [Concomitant]
     Active Substance: ZUCLOPENTHIXOL
     Indication: Agitation
     Route: 065
  19. ZUCLOPENTHIXOL [Concomitant]
     Active Substance: ZUCLOPENTHIXOL
     Indication: Insomnia
     Route: 065
  20. ZUCLOPENTHIXOL [Concomitant]
     Active Substance: ZUCLOPENTHIXOL
     Indication: Schizophrenia
     Route: 065
  21. ZUCLOPENTHIXOL [Concomitant]
     Active Substance: ZUCLOPENTHIXOL
     Indication: Agitation
     Route: 065
  22. ZUCLOPENTHIXOL [Concomitant]
     Active Substance: ZUCLOPENTHIXOL
     Indication: Insomnia
     Route: 065
  23. ZUCLOPENTHIXOL [Concomitant]
     Active Substance: ZUCLOPENTHIXOL
     Indication: Schizophrenia
     Route: 065
  24. ZUCLOPENTHIXOL [Concomitant]
     Active Substance: ZUCLOPENTHIXOL
     Indication: Agitation
     Route: 048
  25. ZUCLOPENTHIXOL [Concomitant]
     Active Substance: ZUCLOPENTHIXOL
     Indication: Insomnia
     Route: 048
  26. ZUCLOPENTHIXOL [Concomitant]
     Active Substance: ZUCLOPENTHIXOL
     Indication: Schizophrenia
     Route: 048
  27. ESCITALOPRAM OXALATE [Concomitant]
     Active Substance: ESCITALOPRAM OXALATE
     Indication: Product used for unknown indication
     Route: 048
  28. HYDERM [Concomitant]
     Indication: Product used for unknown indication
     Route: 061
  29. MELATONIN [Concomitant]
     Active Substance: MELATONIN
     Indication: Psoriasis
     Route: 048
  30. MELATONIN [Concomitant]
     Active Substance: MELATONIN
     Indication: Psoriasis
     Route: 065
  31. MINIMS ATROPINE SULPHATE [Concomitant]
     Indication: Product used for unknown indication
     Route: 065
  32. POLYETHYLENE GLYCOL 3350 [Concomitant]
     Active Substance: POLYETHYLENE GLYCOL 3350
     Indication: Product used for unknown indication
     Route: 048
  33. SENOKOT [Concomitant]
     Active Substance: SENNOSIDES
     Indication: Product used for unknown indication
     Route: 048
  34. TYLENOL [Concomitant]
     Active Substance: ACETAMINOPHEN
     Indication: Pain
     Route: 048
  35. VALISONE [Concomitant]
     Active Substance: BETAMETHASONE VALERATE
     Indication: Product used for unknown indication
     Route: 065
  36. VENTOLIN [Concomitant]
     Active Substance: ALBUTEROL SULFATE
     Indication: Product used for unknown indication
     Route: 065
  37. DICLOFENAC DIETHYLAMINE [Concomitant]
     Active Substance: DICLOFENAC DIETHYLAMINE
     Indication: Myalgia
     Route: 065
  38. VENTOLIN [Concomitant]
     Active Substance: ALBUTEROL SULFATE
     Indication: Myalgia
     Route: 065
  39. VENTOLIN [Concomitant]
     Active Substance: ALBUTEROL SULFATE
     Indication: Myalgia
     Route: 065
  40. MINIMS ATROPINE [Concomitant]
     Indication: Myalgia
     Route: 065
  41. MINIMS ATROPINE [Concomitant]
     Indication: Pain
     Route: 065
  42. MINIMS ATROPINE [Concomitant]
     Indication: Myalgia
     Route: 048
  43. MINIMS ATROPINE [Concomitant]
     Indication: Pain
     Route: 048
  44. MINIMS ATROPINE [Concomitant]
     Indication: Myalgia
     Route: 065
  45. MINIMS ATROPINE [Concomitant]
     Indication: Pain
     Route: 065
  46. MINIMS ATROPINE [Concomitant]
     Indication: Myalgia
     Route: 048
  47. MINIMS ATROPINE [Concomitant]
     Indication: Pain
     Route: 048
  48. MINIMS ATROPINE [Concomitant]
     Indication: Myalgia
     Route: 065
  49. MINIMS ATROPINE [Concomitant]
     Indication: Pain
     Route: 065
  50. MINIMS ATROPINE [Concomitant]
     Indication: Myalgia
     Route: 048
  51. MINIMS ATROPINE [Concomitant]
     Indication: Pain
     Route: 048
  52. MINIMS ATROPINE [Concomitant]
     Indication: Myalgia
     Route: 065
  53. MINIMS ATROPINE [Concomitant]
     Indication: Pain
     Route: 065
  54. MINIMS ATROPINE [Concomitant]
     Indication: Myalgia
     Route: 065
  55. MINIMS ATROPINE [Concomitant]
     Indication: Pain
     Route: 065

REACTIONS (10)
  - Agranulocytosis [Unknown]
  - Drooling [Unknown]
  - Drug ineffective [Unknown]
  - Drug interaction [Unknown]
  - Myelosuppression [Unknown]
  - Neutropenia [Unknown]
  - Neutrophil count decreased [Unknown]
  - Sedation [Unknown]
  - Therapeutic response decreased [Unknown]
  - Weight increased [Unknown]
